FAERS Safety Report 7218394-0 (Version None)
Quarter: 2011Q1

REPORT INFORMATION
  Report Type: 
  Country: None (occurrence: None)
  Receive Date: 20110110
  Receipt Date: 20110103
  Transmission Date: 20110831
  Serious: Yes (Hospitalization)
  Sender: FDA-Public Use
  Company Number: NO-BAXTER-2010BH030307

PATIENT
  Age: 63 Year
  Sex: Female

DRUGS (14)
  1. INSULIN [Concomitant]
     Indication: PRODUCT USED FOR UNKNOWN INDICATION
     Route: 065
  2. KALEORID [Concomitant]
     Indication: MINERAL SUPPLEMENTATION
     Route: 048
  3. EXTRANEAL [Suspect]
     Indication: PERITONEAL DIALYSIS
     Route: 033
     Dates: start: 20101119, end: 20101214
  4. ARANESP [Concomitant]
     Indication: ANAEMIA
     Route: 065
  5. BUMEX [Concomitant]
     Indication: OEDEMA
     Route: 048
  6. SODIUM BICARBONATE [Concomitant]
     Indication: ACIDOSIS
     Route: 048
  7. TITRALAC [Concomitant]
     Indication: PRODUCT USED FOR UNKNOWN INDICATION
     Route: 048
  8. CETIRIZINE HCL [Concomitant]
     Indication: PRODUCT USED FOR UNKNOWN INDICATION
     Route: 065
  9. TOLVON [Concomitant]
     Indication: DEPRESSION
     Route: 048
  10. RENAGEL [Concomitant]
     Indication: PRODUCT USED FOR UNKNOWN INDICATION
     Route: 048
  11. LANSOPRAZOLE [Concomitant]
     Indication: PRODUCT USED FOR UNKNOWN INDICATION
     Route: 065
  12. PHYSIOSOL IN PLASTIC CONTAINER [Concomitant]
     Indication: RENAL FAILURE CHRONIC
     Route: 033
     Dates: start: 20101119
  13. DALTEPARIN SODIUM [Concomitant]
     Indication: THROMBOSIS PROPHYLAXIS
  14. SOBRIL [Concomitant]
     Indication: PRODUCT USED FOR UNKNOWN INDICATION
     Route: 048

REACTIONS (2)
  - WOUND ABSCESS [None]
  - PERITONITIS [None]
